FAERS Safety Report 5190084-8 (Version None)
Quarter: 2006Q4

REPORT INFORMATION
  Report Type: 
  Country: None (occurrence: None)
  Receive Date: 20061222
  Receipt Date: 20061215
  Transmission Date: 20070319
  Serious: Yes (Hospitalization)
  Sender: FDA-Public Use
  Company Number: FR-JNJFOC-20061204611

PATIENT
  Age: 71 Year
  Sex: Female

DRUGS (4)
  1. IMODIUM [Suspect]
     Indication: DIARRHOEA INFECTIOUS
     Route: 048
  2. VICTAN [Concomitant]
     Route: 065
  3. SEROPRAM [Concomitant]
     Route: 065
  4. TAHOR [Concomitant]
     Route: 065

REACTIONS (1)
  - INTESTINAL OBSTRUCTION [None]
